FAERS Safety Report 6895002-X (Version None)
Quarter: 2010Q3

REPORT INFORMATION
  Report Type: 
  Country: None (occurrence: None)
  Receive Date: 20100730
  Receipt Date: 20100730
  Transmission Date: 20110219
  Serious: Yes (Life-Threatening, Disabling, Other)
  Sender: FDA-Public Use
  Company Number: None

PATIENT
  Age: 73 Year
  Sex: Female
  Weight: 72.5755 kg

DRUGS (1)
  1. DICLOFENAC SODIUM [Suspect]
     Indication: MUSCULOSKELETAL DISCOMFORT
     Dosage: 75 MG TWICE A DAY BY MOUTH
     Route: 048
     Dates: start: 20100528, end: 20100704

REACTIONS (7)
  - ARTHRALGIA [None]
  - BURNING SENSATION [None]
  - HYPOAESTHESIA [None]
  - LOSS OF CONSCIOUSNESS [None]
  - PAIN IN JAW [None]
  - PARAESTHESIA [None]
  - SYNCOPE [None]
